FAERS Safety Report 6657041-3 (Version None)
Quarter: 2010Q1

REPORT INFORMATION
  Report Type: 
  Country: None (occurrence: None)
  Receive Date: 20100330
  Receipt Date: 20100324
  Transmission Date: 20100710
  Serious: Yes (Hospitalization, Other)
  Sender: FDA-Public Use
  Company Number: US-ASTRAZENECA-2007UW26725

PATIENT
  Age: 13641 Day
  Sex: Female
  Weight: 97.1 kg

DRUGS (54)
  1. SEROQUEL [Suspect]
     Indication: BIPOLAR DISORDER
     Dosage: 25-400 MG
     Route: 048
     Dates: start: 19990101
  2. SEROQUEL [Suspect]
     Indication: DEPRESSION
     Dosage: 25-400 MG
     Route: 048
     Dates: start: 19990101
  3. SEROQUEL [Suspect]
     Indication: ANXIETY
     Dosage: 25-400 MG
     Route: 048
     Dates: start: 19990101
  4. SEROQUEL [Suspect]
     Indication: SLEEP DISORDER
     Dosage: 25-400 MG
     Route: 048
     Dates: start: 19990101
  5. SEROQUEL [Suspect]
     Dosage: 25-300 MG
     Route: 048
     Dates: start: 20020101, end: 20030101
  6. SEROQUEL [Suspect]
     Dosage: 25-300 MG
     Route: 048
     Dates: start: 20020101, end: 20030101
  7. SEROQUEL [Suspect]
     Dosage: 25-300 MG
     Route: 048
     Dates: start: 20020101, end: 20030101
  8. SEROQUEL [Suspect]
     Dosage: 25-300 MG
     Route: 048
     Dates: start: 20020101, end: 20030101
  9. SEROQUEL [Suspect]
     Dosage: 25 MG
     Route: 048
     Dates: start: 20020906
  10. SEROQUEL [Suspect]
     Dosage: 25 MG
     Route: 048
     Dates: start: 20020906
  11. SEROQUEL [Suspect]
     Dosage: 25 MG
     Route: 048
     Dates: start: 20020906
  12. SEROQUEL [Suspect]
     Dosage: 25 MG
     Route: 048
     Dates: start: 20020906
  13. SEROQUEL [Suspect]
     Dosage: 300 MG 2 TO 1/2 A DAY
     Route: 048
     Dates: start: 20060101
  14. SEROQUEL [Suspect]
     Dosage: 300 MG 2 TO 1/2 A DAY
     Route: 048
     Dates: start: 20060101
  15. SEROQUEL [Suspect]
     Dosage: 300 MG 2 TO 1/2 A DAY
     Route: 048
     Dates: start: 20060101
  16. SEROQUEL [Suspect]
     Dosage: 300 MG 2 TO 1/2 A DAY
     Route: 048
     Dates: start: 20060101
  17. SEROQUEL [Suspect]
     Dosage: 300 MG 2 TO 1/2 A DAY
     Route: 048
     Dates: start: 20090301
  18. SEROQUEL [Suspect]
     Dosage: 300 MG 2 TO 1/2 A DAY
     Route: 048
     Dates: start: 20090301
  19. SEROQUEL [Suspect]
     Dosage: 300 MG 2 TO 1/2 A DAY
     Route: 048
     Dates: start: 20090301
  20. SEROQUEL [Suspect]
     Dosage: 300 MG 2 TO 1/2 A DAY
     Route: 048
     Dates: start: 20090301
  21. ABILIFY [Concomitant]
     Dates: start: 20060330, end: 20060330
  22. PREVACID [Concomitant]
  23. MEVACOR [Concomitant]
  24. METFORMIN HYDROCHLORIDE [Concomitant]
  25. VALIUM [Concomitant]
  26. LISINOPRIL [Concomitant]
  27. PAROXETINE HYDROCHLORIDE [Concomitant]
  28. PROTONIX [Concomitant]
  29. PREMARIN [Concomitant]
  30. NORVASC [Concomitant]
  31. CLONIDINE [Concomitant]
     Indication: BIPOLAR DISORDER
  32. CLONIDINE [Concomitant]
     Indication: HYPERTENSION
  33. HYDROCODONE [Concomitant]
  34. RANITIDINE HYDROCHLORIDE [Concomitant]
  35. ULTRAM [Concomitant]
  36. TYLENOL-500 [Concomitant]
  37. ACTOS [Concomitant]
  38. CYMBALTA [Concomitant]
  39. PAXIL CR [Concomitant]
  40. VISTARIL [Concomitant]
  41. LEVSINEX [Concomitant]
  42. SERZONE [Concomitant]
  43. WELLBUTRIN XL [Concomitant]
  44. PRILOSEC [Concomitant]
  45. MAXZIDE [Concomitant]
  46. DIFLUCAN [Concomitant]
  47. LAMISIL [Concomitant]
  48. VIOXX [Concomitant]
     Dates: start: 20030108
  49. LORSTATIN [Concomitant]
  50. HYDROXYZINE [Concomitant]
  51. CARBAZAZEPINE [Concomitant]
  52. ZOLOFT [Concomitant]
  53. LEXIPRO [Concomitant]
  54. PROZAC [Concomitant]

REACTIONS (22)
  - ANGINA PECTORIS [None]
  - ANXIETY [None]
  - CATARACT [None]
  - CORONARY ARTERY DISEASE [None]
  - DEHYDRATION [None]
  - DIABETES MELLITUS [None]
  - DIABETIC BLINDNESS [None]
  - DIABETIC EYE DISEASE [None]
  - DIABETIC NEUROPATHY [None]
  - DIABETIC RETINOPATHY [None]
  - HYPERTENSION [None]
  - MENISCUS LESION [None]
  - MULTIPLE INJURIES [None]
  - NEUROPATHY PERIPHERAL [None]
  - PALPITATIONS [None]
  - PANIC ATTACK [None]
  - POST-TRAUMATIC STRESS DISORDER [None]
  - RENAL FAILURE ACUTE [None]
  - RETINAL HAEMORRHAGE [None]
  - SEXUAL DYSFUNCTION [None]
  - SYNOVITIS [None]
  - TYPE 2 DIABETES MELLITUS [None]
